FAERS Safety Report 8480614-2 (Version None)
Quarter: 2012Q3

REPORT INFORMATION
  Report Type: 
  Country: None (occurrence: None)
  Receive Date: 20120702
  Receipt Date: 20120622
  Transmission Date: 20120928
  Serious: No
  Sender: FDA-Public Use
  Company Number: US-BIOGENIDEC-2012BI022435

PATIENT
  Sex: Female

DRUGS (6)
  1. ZOLOFT [Concomitant]
     Indication: DEPRESSION
     Dates: start: 19990101
  2. ABILIFY [Concomitant]
     Indication: DEPRESSION
     Dates: start: 19990101
  3. IBUPROFEN [Concomitant]
     Indication: PREMEDICATION
  4. PROZAC [Concomitant]
     Indication: DEPRESSION
     Dates: start: 19990101
  5. AVONEX [Suspect]
     Indication: MULTIPLE SCLEROSIS
     Route: 030
     Dates: start: 20120413
  6. TRAZODONE HCL [Concomitant]
     Indication: DEPRESSION
     Dates: start: 19990101

REACTIONS (9)
  - SOMNOLENCE [None]
  - PAIN IN EXTREMITY [None]
  - BURNING SENSATION [None]
  - DEPRESSION [None]
  - HEADACHE [None]
  - OEDEMA PERIPHERAL [None]
  - FATIGUE [None]
  - MUSCULOSKELETAL STIFFNESS [None]
  - GAIT DISTURBANCE [None]
